FAERS Safety Report 4877302-8 (Version None)
Quarter: 2006Q1

REPORT INFORMATION
  Report Type: 
  Country: None (occurrence: None)
  Receive Date: 20060109
  Receipt Date: 20051227
  Transmission Date: 20060701
  Serious: Yes (Death, Hospitalization)
  Sender: FDA-Public Use
  Company Number: 2005-BP-21837RO

PATIENT
  Age: 74 Year
  Sex: Female

DRUGS (6)
  1. METHOTREXATE [Suspect]
     Dosage: PO
     Route: 048
  2. LEVOTHYROXINE SODIUM [Concomitant]
  3. PREDNISOLONE [Concomitant]
  4. OXYTETRACYCLINE [Concomitant]
  5. CO-PROXAMOL (DI-GESIC) [Concomitant]
  6. FUSIDIC ACID [Concomitant]

REACTIONS (3)
  - MUCOSAL INFLAMMATION [None]
  - PANCYTOPENIA [None]
  - SEPSIS [None]
